FAERS Safety Report 14772879 (Version 2)
Quarter: 2018Q2

REPORT INFORMATION
  Report Type: Spontaneous
  Country: US (occurrence: US)
  Receive Date: 20180418
  Receipt Date: 20180523
  Transmission Date: 20180711
  Serious: No
  Sender: FDA-Public Use
  Company Number: US-PFIZER INC-2018157405

PATIENT
  Age: 78 Year
  Sex: Male

DRUGS (1)
  1. GABAPENTIN. [Suspect]
     Active Substance: GABAPENTIN
     Dosage: 2400 MG, DAILY (3 CAPSULES IN THE MORNING, 2 CAPSULES IN THE AFTERNOON AND 3 CAPSULES AT NIGHT)
     Route: 048

REACTIONS (4)
  - Pain [Unknown]
  - Pyrexia [Unknown]
  - Dizziness [Unknown]
  - Productive cough [Unknown]
